FAERS Safety Report 7392498-4 (Version None)
Quarter: 2011Q2

REPORT INFORMATION
  Report Type: 
  Country: None (occurrence: None)
  Receive Date: 20110404
  Receipt Date: 20110322
  Transmission Date: 20111010
  Serious: Yes (Other)
  Sender: FDA-Public Use
  Company Number: US-ELI_LILLY_AND_COMPANY-US201103006909

PATIENT
  Sex: Female
  Weight: 101.13 kg

DRUGS (2)
  1. EVISTA [Suspect]
     Dosage: UNK, UNKNOWN
  2. BONIVA [Concomitant]

REACTIONS (2)
  - OSTEONECROSIS OF JAW [None]
  - DEEP VEIN THROMBOSIS [None]
